FAERS Safety Report 6464079-8 (Version None)
Quarter: 2009Q4

REPORT INFORMATION
  Report Type: 
  Country: None (occurrence: None)
  Receive Date: 20091130
  Receipt Date: 20091130
  Transmission Date: 20100525
  Serious: Yes (Hospitalization)
  Sender: FDA-Public Use
  Company Number: None

PATIENT
  Age: 39 Year
  Sex: Male

DRUGS (5)
  1. VARENICLINE 0.5MG TABS [Suspect]
     Indication: SMOKING CESSATION THERAPY
     Dosage: 0.5MG DAILY PO
     Route: 048
     Dates: start: 20091024, end: 20091026
  2. PREDNISONE TAB [Concomitant]
  3. AMOXICILLIN AND CLAVULANATE POTASSIUM [Concomitant]
  4. LEVOFLOXACIN [Concomitant]
  5. TOPROL-XL [Concomitant]

REACTIONS (1)
  - MYALGIA [None]
